FAERS Safety Report 4506732-9 (Version None)
Quarter: 2004Q4

REPORT INFORMATION
  Report Type: 
  Country: None (occurrence: None)
  Receive Date: 20041122
  Receipt Date: 20041116
  Transmission Date: 20050328
  Serious: Yes (Life-Threatening, Disabling)
  Sender: FDA-Public Use
  Company Number: US-MERCK-0411USA02856

PATIENT
  Age: 54 Year
  Sex: Female

DRUGS (3)
  1. VIOXX [Suspect]
     Indication: BACK PAIN
     Route: 048
     Dates: start: 20040201, end: 20040401
  2. VIOXX [Suspect]
     Route: 048
     Dates: start: 20030101
  3. IBUPROFEN [Concomitant]
     Route: 065

REACTIONS (2)
  - LIVER DISORDER [None]
  - STOMACH DISCOMFORT [None]
